FAERS Safety Report 11393168 (Version 1)
Quarter: 2015Q3

REPORT INFORMATION
  Report Type: Report from Study
  Country: ES (occurrence: ES)
  Receive Date: 20150818
  Receipt Date: 20150818
  Transmission Date: 20151125
  Serious: Yes (Other)
  Sender: FDA-Public Use
  Company Number: ES-ABBVIE-15K-144-1443601-00

PATIENT
  Age: 55 Year
  Sex: Male

DRUGS (2)
  1. HUMIRA [Suspect]
     Active Substance: ADALIMUMAB
     Dosage: WEEK 1
     Route: 058
     Dates: start: 201102
  2. HUMIRA [Suspect]
     Active Substance: ADALIMUMAB
     Indication: PSORIASIS
     Dosage: WEEK 0
     Route: 058
     Dates: start: 20110207, end: 20110207

REACTIONS (1)
  - Bladder neoplasm [Unknown]

NARRATIVE: CASE EVENT DATE: 201504
